FAERS Safety Report 8093939-X (Version None)
Quarter: 2012Q1

REPORT INFORMATION
  Report Type: 
  Country: None (occurrence: None)
  Receive Date: 20120130
  Receipt Date: 20120123
  Transmission Date: 20120608
  Serious: Yes (Hospitalization)
  Sender: FDA-Public Use
  Company Number: IL-US-EMD SERONO, INC.-7108694

PATIENT
  Age: 66 Year
  Sex: Female

DRUGS (14)
  1. VENTAVIS [Concomitant]
     Indication: PULMONARY HYPERTENSION
  2. AEROVENT [Concomitant]
     Indication: CHRONIC OBSTRUCTIVE PULMONARY DISEASE
  3. OXYGEN [Concomitant]
     Indication: CHRONIC OBSTRUCTIVE PULMONARY DISEASE
  4. LIPITOR [Concomitant]
     Indication: HYPERLIPIDAEMIA
  5. MICROPIRIN [Concomitant]
     Indication: MYOCARDIAL ISCHAEMIA
  6. REBIF [Suspect]
     Indication: RELAPSING-REMITTING MULTIPLE SCLEROSIS
     Route: 058
     Dates: start: 19970101
  7. REMODULIN [Concomitant]
     Indication: PULMONARY HYPERTENSION
     Dates: start: 20120101
  8. FUROSEMIDE [Concomitant]
     Indication: MYOCARDIAL ISCHAEMIA
  9. REBIF [Suspect]
     Route: 058
     Dates: end: 20120119
  10. LEVOTHYROXINE SODIUM [Suspect]
     Indication: HYPOTHYROIDISM
     Route: 048
     Dates: start: 20111101
  11. LEVOTHYROXINE SODIUM [Suspect]
     Indication: HYPOTHYROIDISM
     Route: 048
     Dates: end: 20111101
  12. TRACLEER [Concomitant]
     Indication: PULMONARY HYPERTENSION
     Dates: start: 20111201
  13. CARDILOC [Concomitant]
     Indication: MYOCARDIAL ISCHAEMIA
  14. PLAVIX [Concomitant]
     Indication: HYPERLIPIDAEMIA

REACTIONS (6)
  - PULMONARY OEDEMA [None]
  - PULMONARY HYPERTENSION [None]
  - PULMONARY ARTERY STENOSIS [None]
  - ASTHENIA [None]
  - DYSPNOEA [None]
  - HYPOTHYROIDISM [None]
